FAERS Safety Report 18379684 (Version 2)
Quarter: 2020Q4

REPORT INFORMATION
  Report Type: Spontaneous
  Country: US (occurrence: US)
  Receive Date: 20201014
  Receipt Date: 20201014
  Transmission Date: 20210114
  Serious: Yes (Hospitalization, Other)
  Sender: FDA-Public Use
  Company Number: US-BIOGEN-2013BI087419

PATIENT
  Age: 49 Year
  Sex: Female

DRUGS (4)
  1. AVASTIN [Suspect]
     Active Substance: BEVACIZUMAB
     Indication: OVARIAN CANCER
     Route: 042
  2. AVONEX [Suspect]
     Active Substance: INTERFERON BETA-1A
     Indication: MULTIPLE SCLEROSIS
     Route: 030
  3. AVONEX [Suspect]
     Active Substance: INTERFERON BETA-1A
     Route: 065
     Dates: start: 19970902
  4. LYNPARZA [Suspect]
     Active Substance: OLAPARIB
     Indication: OVARIAN CANCER
     Route: 065

REACTIONS (7)
  - Hypertension [Unknown]
  - Breast cancer [Recovered/Resolved]
  - Ovarian cancer [Recovered/Resolved]
  - Dyspnoea [Unknown]
  - Renal disorder [Unknown]
  - Cardiac failure congestive [Unknown]
  - Nausea [Unknown]

NARRATIVE: CASE EVENT DATE: 201303
